FAERS Safety Report 13117236 (Version 1)
Quarter: 2017Q1

REPORT INFORMATION
  Report Type: Spontaneous
  Country: US (occurrence: US)
  Receive Date: 20170116
  Receipt Date: 20170116
  Transmission Date: 20170428
  Serious: No
  Sender: FDA-Public Use
  Company Number: US-009507513-1612USA014445

PATIENT
  Age: 60 Year
  Sex: Female

DRUGS (2)
  1. DULERA [Suspect]
     Active Substance: FORMOTEROL FUMARATE DIHYDRATE\MOMETASONE FUROATE
     Indication: ASTHMA
     Dosage: 200/5 MICROGRAM - 2 PUFFS TWICE A DAY, BID
     Route: 055
     Dates: start: 2015
  2. DULERA [Suspect]
     Active Substance: FORMOTEROL FUMARATE DIHYDRATE\MOMETASONE FUROATE
     Dosage: 200/5 MICROGRAM - 2 PUFFS TWICE A DAY, BID
     Route: 055
     Dates: start: 201612

REACTIONS (3)
  - Product container issue [Unknown]
  - Productive cough [Recovering/Resolving]
  - Drug dose omission [Unknown]

NARRATIVE: CASE EVENT DATE: 20161227
